FAERS Safety Report 9039526 (Version 1)
Quarter: 2013Q1

REPORT INFORMATION
  Report Type: Spontaneous
  Country: US (occurrence: US)
  Receive Date: 20130129
  Receipt Date: 20130129
  Transmission Date: 20140127
  Serious: Yes (Hospitalization)
  Sender: FDA-Public Use
  Company Number: US-PFIZER INC-2013034288

PATIENT
  Age: 49 Year
  Sex: Male
  Weight: 81.63 kg

DRUGS (2)
  1. RAPAMUNE [Suspect]
     Indication: PANCREAS TRANSPLANT
     Dosage: 1 MG, 3X/DAY
     Route: 048
     Dates: start: 200911
  2. PROGRAF [Concomitant]
     Indication: PROPHYLAXIS AGAINST TRANSPLANT REJECTION
     Dosage: 1 MG, 8X/DAY

REACTIONS (2)
  - Pneumonia [Recovered/Resolved]
  - Off label use [Unknown]
